FAERS Safety Report 10521983 (Version 1)
Quarter: 2014Q4

REPORT INFORMATION
  Report Type: Spontaneous
  Country: DE (occurrence: None)
  Receive Date: 20141014
  Receipt Date: 20141014
  Transmission Date: 20150528
  Serious: Yes (Life-Threatening, Disabling)
  Sender: FDA-Public Use
  Company Number: DE-20140154

PATIENT
  Age: 66 Year
  Sex: Female

DRUGS (1)
  1. DOTAREM [Suspect]
     Active Substance: GADOTERATE MEGLUMINE
     Indication: NUCLEAR MAGNETIC RESONANCE IMAGING BRAIN
     Dosage: NOT OTHERWISE SPECIFIED
     Route: 042
     Dates: start: 20140625, end: 20140625

REACTIONS (2)
  - Cerebral haemorrhage [None]
  - Hemiparesis [None]

NARRATIVE: CASE EVENT DATE: 20140615
